FAERS Safety Report 4868169-2 (Version None)
Quarter: 2005Q4

REPORT INFORMATION
  Report Type: 
  Country: None (occurrence: None)
  Receive Date: 20051229
  Receipt Date: 20051220
  Transmission Date: 20060501
  Serious: Yes (Other)
  Sender: FDA-Public Use
  Company Number: GB-JNJFOC-20051205059

PATIENT
  Age: 32 Year
  Sex: Male

DRUGS (1)
  1. RISPERDAL CONSTA [Suspect]
     Dosage: 2 INJECTIONS GIVEN
     Route: 030

REACTIONS (3)
  - AGITATION [None]
  - ANGER [None]
  - ANXIETY [None]
